FAERS Safety Report 5625502-1 (Version None)
Quarter: 2008Q1

REPORT INFORMATION
  Report Type: 
  Country: None (occurrence: None)
  Receive Date: 20080211
  Receipt Date: 20080131
  Transmission Date: 20080703
  Serious: Yes (Other)
  Sender: FDA-Public Use
  Company Number: 2008AP000345

PATIENT
  Age: 28 Year
  Sex: Female

DRUGS (13)
  1. PAROXETINE HCL [Suspect]
     Dosage: SEE IMAGE
     Dates: start: 19960108
  2. PAROXETINE HCL [Suspect]
     Dosage: SEE IMAGE
     Dates: start: 19960108
  3. PAROXETINE HCL [Suspect]
     Dosage: SEE IMAGE
     Dates: start: 19960619
  4. PAROXETINE HCL [Suspect]
     Dosage: SEE IMAGE
     Dates: start: 19961005
  5. PAROXETINE HCL [Suspect]
     Dosage: SEE IMAGE
     Dates: start: 20001011
  6. PAROXETINE HCL [Suspect]
     Dosage: SEE IMAGE
     Dates: start: 20010510
  7. PAROXETINE HCL [Suspect]
     Dosage: SEE IMAGE
     Dates: start: 20031124
  8. PAROXETINE HCL [Suspect]
     Dosage: SEE IMAGE
     Dates: start: 20040714
  9. PAROXETINE HCL [Suspect]
     Dosage: SEE IMAGE
     Dates: start: 20040916
  10. PAROXETINE HCL [Suspect]
     Dosage: SEE IMAGE
     Dates: start: 20050408
  11. CLOMIPRAMINE HCL [Concomitant]
  12. FLUOXETINE HCL [Concomitant]
  13. DIAZEPAM [Concomitant]

REACTIONS (21)
  - ANXIETY [None]
  - CRYING [None]
  - DAYDREAMING [None]
  - DISTURBANCE IN ATTENTION [None]
  - DIZZINESS [None]
  - EMOTIONAL DISORDER [None]
  - HYPERHIDROSIS [None]
  - HYPOTHYROIDISM [None]
  - INSOMNIA [None]
  - MEMORY IMPAIRMENT [None]
  - MOOD ALTERED [None]
  - PANIC ATTACK [None]
  - PARAESTHESIA [None]
  - PRURITUS [None]
  - SUICIDAL IDEATION [None]
  - TEARFULNESS [None]
  - TREMOR [None]
  - URTICARIA [None]
  - VOMITING [None]
  - WEIGHT INCREASED [None]
  - WITHDRAWAL SYNDROME [None]
